FAERS Safety Report 6358162-5 (Version None)
Quarter: 2009Q3

REPORT INFORMATION
  Report Type: 
  Country: None (occurrence: None)
  Receive Date: 20090916
  Receipt Date: 20090817
  Transmission Date: 20100115
  Serious: Yes (Disabling, Other)
  Sender: FDA-Public Use
  Company Number: AU-MERCK-0908USA00410

PATIENT
  Age: 83 Year
  Sex: Female
  Weight: 86 kg

DRUGS (10)
  1. FOSAMAX [Suspect]
     Indication: OSTEOPOROSIS
     Route: 048
     Dates: end: 20090101
  2. ALDACTONE [Concomitant]
     Route: 065
  3. METOPROLOL TARTRATE [Concomitant]
     Route: 065
  4. COVERSYL (PERINDOPRIL ARGININE) [Concomitant]
     Route: 065
  5. MIRTAZAPINE [Concomitant]
     Route: 065
  6. LASIX [Concomitant]
     Route: 065
  7. NEXIUM [Concomitant]
     Route: 065
  8. OSTELIN (CHOLECALCIFEROL) [Concomitant]
     Route: 065
  9. SIMVAR [Concomitant]
     Route: 065
  10. SLOW-K [Concomitant]
     Route: 065

REACTIONS (1)
  - OSTEONECROSIS [None]
